FAERS Safety Report 22379303 (Version 1)
Quarter: 2023Q2

REPORT INFORMATION
  Report Type: Report from Study
  Country: GB (occurrence: GB)
  Receive Date: 20230529
  Receipt Date: 20230529
  Transmission Date: 20230721
  Serious: Yes (Hospitalization, Disabling, Other)
  Sender: FDA-Public Use
  Company Number: GB-002147023-NVSC2021GB093377

PATIENT
  Age: 13 Year
  Sex: Male
  Weight: 46.6 kg

DRUGS (9)
  1. VOTRIENT [Suspect]
     Active Substance: PAZOPANIB HYDROCHLORIDE
     Indication: Desmoid tumour
     Dosage: 300 MG, QD
     Route: 048
     Dates: start: 20201202, end: 20210323
  2. VOTRIENT [Suspect]
     Active Substance: PAZOPANIB HYDROCHLORIDE
     Dosage: 200 MG, QD
     Route: 065
     Dates: start: 20210324, end: 20220209
  3. VOTRIENT [Suspect]
     Active Substance: PAZOPANIB HYDROCHLORIDE
     Dosage: 300 MG, QD (ALTERNATING 200 MG/400 MG)
     Route: 065
     Dates: end: 20220211
  4. LEVOTHYROXINE [Concomitant]
     Active Substance: LEVOTHYROXINE
     Indication: Hypothyroidism
     Dosage: 75MCG / 50MCG ON ALTERANATE DAYS
     Route: 065
     Dates: start: 20210312, end: 20220201
  5. GABAPENTIN [Concomitant]
     Active Substance: GABAPENTIN
     Indication: Analgesic therapy
     Dosage: 500 MG, TID
     Route: 065
     Dates: start: 20190224, end: 20220201
  6. GABAPENTIN [Concomitant]
     Active Substance: GABAPENTIN
     Dosage: 400 MG, TID
     Route: 048
     Dates: start: 20201202, end: 20230405
  7. MORPHINE SULFATE [Concomitant]
     Active Substance: MORPHINE SULFATE
     Indication: Analgesic therapy
     Dosage: 5 MG, QD (PRN) (ONGOING)
     Route: 048
     Dates: start: 20201113
  8. MORPHINE SULFATE [Concomitant]
     Active Substance: MORPHINE SULFATE
     Dosage: 5 MG, QD
     Route: 065
     Dates: start: 20201230, end: 20220201
  9. DOCUSATE [Concomitant]
     Active Substance: DOCUSATE
     Indication: Product used for unknown indication
     Dosage: 100 MG, BID (PRN)
     Route: 048
     Dates: start: 20191106

REACTIONS (13)
  - Myalgia [Recovered/Resolved]
  - Thyroid disorder [Not Recovered/Not Resolved]
  - Neoplasm progression [Not Recovered/Not Resolved]
  - Desmoid tumour [Not Recovered/Not Resolved]
  - Dysphagia [Unknown]
  - Neuralgia [Unknown]
  - Skin discolouration [Unknown]
  - Pyrexia [Unknown]
  - Blood thyroid stimulating hormone increased [Unknown]
  - Pain in extremity [Unknown]
  - Hair colour changes [Unknown]
  - Musculoskeletal pain [Unknown]
  - Drug ineffective [Unknown]

NARRATIVE: CASE EVENT DATE: 20210222
